FAERS Safety Report 5517848-2 (Version None)
Quarter: 2007Q4

REPORT INFORMATION
  Report Type: 
  Country: None (occurrence: None)
  Receive Date: 20071113
  Receipt Date: 20071031
  Transmission Date: 20080405
  Serious: Yes (Hospitalization)
  Sender: FDA-Public Use
  Company Number: S07-USA-05753-01

PATIENT
  Age: 73 Year
  Sex: Male

DRUGS (3)
  1. LEXAPRO [Suspect]
     Indication: POST-TRAUMATIC STRESS DISORDER
     Dosage: 10 MG QD PO
     Route: 048
     Dates: start: 20071017
  2. PENTOTHAL [Suspect]
     Indication: SEDATION
     Dates: start: 20071023, end: 20071023
  3. 70/30 NPH / REGULAR INSULIN [Concomitant]

REACTIONS (4)
  - BLOOD GLUCOSE INCREASED [None]
  - CATARACT OPERATION [None]
  - HEART RATE DECREASED [None]
  - PROCEDURAL COMPLICATION [None]
